FAERS Safety Report 17755451 (Version 3)
Quarter: 2020Q2

REPORT INFORMATION
  Report Type: Spontaneous
  Country: US (occurrence: US)
  Receive Date: 20200507
  Receipt Date: 20200514
  Transmission Date: 20200714
  Serious: No
  Sender: FDA-Public Use
  Company Number: US-PFIZER INC-2020182480

PATIENT
  Age: 48 Year
  Sex: Female
  Weight: 87.08 kg

DRUGS (1)
  1. TOVIAZ [Suspect]
     Active Substance: FESOTERODINE FUMARATE
     Indication: CALCULUS URINARY
     Dosage: 8 MG, DAILY
     Route: 048
     Dates: start: 20170616

REACTIONS (3)
  - Off label use [Unknown]
  - Product use in unapproved indication [Unknown]
  - Cystitis interstitial [Unknown]
